FAERS Safety Report 9937153 (Version 1)
Quarter: 2014Q1

REPORT INFORMATION
  Report Type: Spontaneous
  Country: FR (occurrence: FR)
  Receive Date: 20140301
  Receipt Date: 20140301
  Transmission Date: 20141002
  Serious: Yes (Hospitalization)
  Sender: FDA-Public Use
  Company Number: PHHY2014FR021497

PATIENT
  Age: 48 Year
  Sex: Female

DRUGS (3)
  1. OXALIPLATIN [Suspect]
     Indication: PSEUDOMYXOMA PERITONEI
     Dosage: 460 MG/M2, UNK
  2. LEUCOVORIN [Concomitant]
     Route: 042
  3. 5-FU [Concomitant]
     Route: 042

REACTIONS (12)
  - Histiocytosis haematophagic [Recovered/Resolved]
  - Pyrexia [Recovered/Resolved]
  - Splenomegaly [Recovered/Resolved]
  - Abdominal sepsis [Recovered/Resolved]
  - Anaemia [Recovered/Resolved]
  - Rash [Recovered/Resolved]
  - Haemorrhage [Recovered/Resolved]
  - Abdominal wall haemorrhage [Recovered/Resolved]
  - Intra-abdominal haemorrhage [Recovered/Resolved]
  - Peritoneal haemorrhage [Recovered/Resolved]
  - Thrombocytopenia [Recovered/Resolved]
  - Hypotension [Recovered/Resolved]
